FAERS Safety Report 10902994 (Version 12)
Quarter: 2015Q3

REPORT INFORMATION
  Report Type: Report from Study
  Country: MX (occurrence: MX)
  Receive Date: 20150310
  Receipt Date: 20150930
  Transmission Date: 20151125
  Serious: Yes (Hospitalization)
  Sender: FDA-Public Use
  Company Number: MX-AMGEN-MEXCT2015021903

PATIENT
  Age: 64 Year
  Sex: Female

DRUGS (31)
  1. HYDROXYCHLOROQUINE [Concomitant]
     Active Substance: HYDROXYCHLOROQUINE
     Indication: RHEUMATOID ARTHRITIS
     Dosage: 300 MG, WEEKLY
     Route: 048
     Dates: start: 20110620, end: 20150201
  2. PREDNISONE. [Concomitant]
     Active Substance: PREDNISONE
     Indication: RHEUMATOID ARTHRITIS
     Dosage: 20 MG, 1X/DAY
     Route: 048
     Dates: start: 20110215, end: 201104
  3. LATANOPROST. [Concomitant]
     Active Substance: LATANOPROST
     Indication: XEROPHTHALMIA
     Dosage: 2 MG, 1X/DAY
     Route: 047
     Dates: start: 20120111, end: 201407
  4. RIVOTRIL [Concomitant]
     Active Substance: CLONAZEPAM
     Dosage: 500 MG, AS NEEDED
     Route: 048
     Dates: start: 201501
  5. STREPTODORNASE [Concomitant]
     Active Substance: STREPTODORNASE
     Indication: ABDOMINAL ABSCESS
     Dosage: 2500 DF, DAILY
     Route: 048
     Dates: start: 20130212, end: 20130215
  6. TRIMETHOPRIM. [Concomitant]
     Active Substance: TRIMETHOPRIM
     Indication: URINARY TRACT INFECTION
     Dosage: 400 MG, 2X/DAY
     Route: 048
     Dates: start: 20141009, end: 20141016
  7. METHOTREXATE [Concomitant]
     Active Substance: METHOTREXATE
     Indication: RHEUMATOID ARTHRITIS
     Dosage: 17.5 MG, WEEKLY
     Route: 048
     Dates: start: 20110215, end: 201404
  8. IBUPROFEN. [Concomitant]
     Active Substance: IBUPROFEN
     Indication: RHEUMATOID ARTHRITIS
     Dosage: 800 MG, 1X/DAY
     Route: 048
     Dates: start: 20120315, end: 201310
  9. RIVOTRIL [Concomitant]
     Active Substance: CLONAZEPAM
     Indication: MAJOR DEPRESSION
     Dosage: 1 MG, 1X/DAY
     Route: 048
     Dates: start: 20031001, end: 201408
  10. STREPTOKINASE [Concomitant]
     Active Substance: STREPTOKINASE
     Indication: ABDOMINAL ABSCESS
     Dosage: 10000 DF, DAILY
     Route: 048
     Dates: start: 20130212, end: 20130215
  11. ETANERCEPT [Suspect]
     Active Substance: ETANERCEPT
     Indication: RHEUMATOID ARTHRITIS
     Dosage: 50 MG, WEEKLY
     Route: 058
     Dates: end: 201410
  12. METHOTREXATE [Concomitant]
     Active Substance: METHOTREXATE
     Dosage: 10 MG, WEEKLY
     Route: 048
     Dates: start: 201404, end: 20150202
  13. OMEPRAZOL                          /00661201/ [Concomitant]
     Active Substance: OMEPRAZOLE
     Indication: PEPTIC ULCER
     Dosage: 20 MG, 1X/DAY
     Route: 048
     Dates: start: 20110330
  14. SULFAMETHOXAZOLE [Concomitant]
     Active Substance: SULFAMETHOXAZOLE
     Indication: URINARY TRACT INFECTION
     Dosage: 80 MG, 2X/DAY
     Route: 048
     Dates: start: 20141009, end: 20141016
  15. LEVOFLOXACIN. [Concomitant]
     Active Substance: LEVOFLOXACIN
     Indication: URINARY TRACT INFECTION
     Dosage: 500 MG, DAILY
     Route: 048
     Dates: start: 20141227, end: 20150102
  16. IBUPROFEN. [Concomitant]
     Active Substance: IBUPROFEN
     Dosage: 800 MG, AS NEEDED
     Route: 048
     Dates: start: 201310, end: 20150202
  17. PAROXETINE [Concomitant]
     Active Substance: PAROXETINE\PAROXETINE HYDROCHLORIDE
     Dosage: 20 MG, 1X/DAY
     Route: 048
     Dates: start: 201408
  18. CIPROFLOXACIN. [Concomitant]
     Active Substance: CIPROFLOXACIN
     Indication: URINARY TRACT INFECTION
     Dosage: 500 MG, UNK
     Route: 048
     Dates: start: 20130720, end: 20130727
  19. CEFUROXIME. [Concomitant]
     Active Substance: CEFUROXIME
     Indication: URINARY TRACT INFECTION
     Dosage: 500 MG, 2X/DAY
     Route: 048
     Dates: start: 201410, end: 201410
  20. NITROFURANTOIN. [Concomitant]
     Active Substance: NITROFURANTOIN
     Indication: URINARY TRACT INFECTION
     Dosage: 100 MG, 2X/DAY
     Route: 048
     Dates: start: 201411, end: 201411
  21. TIMOLOL. [Concomitant]
     Active Substance: TIMOLOL
     Indication: GLAUCOMA
     Dosage: 5 G, 2 IN 1 D
     Route: 061
     Dates: start: 2002
  22. PREDNISONE. [Concomitant]
     Active Substance: PREDNISONE
     Dosage: 2.5 MG, 1X/DAY
     Route: 048
     Dates: start: 20141216, end: 20150216
  23. RIVOTRIL [Concomitant]
     Active Substance: CLONAZEPAM
     Dosage: 2 MG, (1 IN 1 AS NEEDED)
     Route: 048
     Dates: start: 201408, end: 201501
  24. LINCOMYCIN. [Concomitant]
     Active Substance: LINCOMYCIN
     Indication: ABDOMINAL ABSCESS
     Dosage: 500 MG, 3X/DAY
     Route: 048
     Dates: start: 20130212, end: 20130217
  25. FOSFOMICINA                        /00552501/ [Concomitant]
     Indication: URINARY TRACT INFECTION
     Dosage: 3 G, 1 IN 3 D
     Route: 030
     Dates: start: 20140114, end: 20150126
  26. PREDNISONE. [Concomitant]
     Active Substance: PREDNISONE
     Indication: URINARY TRACT INFECTION
     Dosage: 5 MG, 1X/DAY
     Route: 048
     Dates: start: 20140929, end: 20141215
  27. FOLIC ACID. [Concomitant]
     Active Substance: FOLIC ACID
     Dosage: 5 MG, 1X/DAY
     Route: 048
     Dates: start: 20110215, end: 201404
  28. FOLIC ACID. [Concomitant]
     Active Substance: FOLIC ACID
     Dosage: 5 MG, 1X/DAY
     Route: 048
     Dates: start: 201404
  29. LATANOPROST. [Concomitant]
     Active Substance: LATANOPROST
     Dosage: 0.05 MG, 1X/DAY
     Route: 047
     Dates: start: 201407
  30. PAROXETINE [Concomitant]
     Active Substance: PAROXETINE\PAROXETINE HYDROCHLORIDE
     Indication: MAJOR DEPRESSION
     Dosage: 50 MG, 1X/DAY
     Route: 048
     Dates: start: 20031001, end: 201408
  31. AMIKACIN [Concomitant]
     Active Substance: AMIKACIN
     Indication: URINARY TRACT INFECTION
     Dosage: 500 MG, DAILY
     Route: 030
     Dates: start: 20121011, end: 20121015

REACTIONS (1)
  - Overlap syndrome [Recovered/Resolved with Sequelae]

NARRATIVE: CASE EVENT DATE: 201501
